FAERS Safety Report 26047939 (Version 1)
Quarter: 2025Q4

REPORT INFORMATION
  Report Type: Spontaneous
  Country: US (occurrence: US)
  Receive Date: 20251114
  Receipt Date: 20251114
  Transmission Date: 20260117
  Serious: Yes (Hospitalization, Other)
  Sender: FRESENIUS KABI
  Company Number: US-FreseniusKabi-FK202515411

PATIENT
  Age: 63 Year
  Sex: Male
  Weight: 62 kg

DRUGS (4)
  1. LIDOCAINE [Suspect]
     Active Substance: LIDOCAINE
     Indication: Analgesic therapy
     Dosage: WITHOUT EPINEPHRINE?RUG ADMINISTERED BY THORACOSTOMY TUBE?INADVERTENTLY DOSED AT 3 ML/KG INSTEAD OF
     Route: 034
  2. OXYCODONE [Concomitant]
     Active Substance: OXYCODONE
     Indication: Product used for unknown indication
     Dosage: EXTENDED-RELEASE
     Route: 048
  3. MORPHINE [Concomitant]
     Active Substance: MORPHINE
     Indication: Product used for unknown indication
     Dosage: 75 MIN AND 45 MIN PRIOR TO PROCEDURE
     Route: 042
  4. NALOXONE [Concomitant]
     Active Substance: NALOXONE
     Indication: Toxicity to various agents
     Dosage: 75 MIN AND 45 MIN PRIOR TO PROCEDURE
     Route: 042

REACTIONS (2)
  - Local anaesthetic systemic toxicity [Recovered/Resolved]
  - Accidental overdose [Unknown]
